FAERS Safety Report 15560501 (Version 2)
Quarter: 2019Q1

REPORT INFORMATION
  Report Type: Spontaneous
  Country: US (occurrence: US)
  Receive Date: 20181029
  Receipt Date: 20190128
  Transmission Date: 20190417
  Serious: No
  Sender: FDA-Public Use
  Company Number: US-BRACCO-2018US05019

PATIENT
  Sex: Female

DRUGS (1)
  1. E-Z-DISK [Suspect]
     Active Substance: BARIUM SULFATE
     Indication: BARIUM SWALLOW
     Dosage: UNK UNK, SINGLE
     Route: 048
     Dates: start: 20180927, end: 20180927

REACTIONS (2)
  - Product solubility abnormal [Recovered/Resolved]
  - Foreign body in gastrointestinal tract [Recovered/Resolved]

NARRATIVE: CASE EVENT DATE: 20180927
